FAERS Safety Report 4935150-4 (Version None)
Quarter: 2006Q1

REPORT INFORMATION
  Report Type: 
  Country: None (occurrence: None)
  Receive Date: 20060306
  Receipt Date: 20060306
  Transmission Date: 20060701
  Serious: No
  Sender: FDA-Public Use
  Company Number: None

PATIENT
  Age: 20 Year

DRUGS (2)
  1. AUGMENTIN [Suspect]
     Dosage: 875 Q 12 PO
     Route: 048
     Dates: start: 20051220, end: 20051221
  2. ANTIBIOTIC [Concomitant]

REACTIONS (1)
  - PRURITUS [None]
